FAERS Safety Report 4429941-6 (Version None)
Quarter: 2004Q3

REPORT INFORMATION
  Report Type: 
  Country: None (occurrence: None)
  Receive Date: 20040817
  Receipt Date: 20040817
  Transmission Date: 20050211
  Serious: Yes (Other)
  Sender: FDA-Public Use
  Company Number: None

PATIENT
  Age: 67 Year
  Sex: Female
  Weight: 60.1 kg

DRUGS (1)
  1. RITUXAN [Suspect]
     Indication: CARCINOMA
     Dosage: X 1 IVPB
     Route: 042
     Dates: start: 20040812

REACTIONS (2)
  - BLOOD PRESSURE SYSTOLIC INCREASED [None]
  - HYPERTENSIVE CRISIS [None]
